FAERS Safety Report 9676560 (Version 1)
Quarter: 2013Q4

REPORT INFORMATION
  Report Type: Spontaneous
  Country: GB (occurrence: GB)
  Receive Date: 20131107
  Receipt Date: 20131107
  Transmission Date: 20140711
  Serious: Yes (Hospitalization)
  Sender: FDA-Public Use
  Company Number: PHHY2013GB124196

PATIENT
  Age: 42 Year
  Sex: Male

DRUGS (38)
  1. OLANZAPINE [Suspect]
     Indication: SCHIZOAFFECTIVE DISORDER
     Dosage: UNK
     Dates: start: 199708
  2. OLANZAPINE [Suspect]
     Dosage: 10 MG, QD (IN THE EVENING)
     Dates: start: 20051019, end: 200707
  3. OLANZAPINE [Suspect]
     Dosage: 5 MG, QD
     Dates: start: 200707, end: 20080819
  4. OLANZAPINE [Suspect]
     Dosage: UNK
     Dates: start: 199708
  5. OLANZAPINE [Suspect]
     Dosage: 20 MG, UNK
     Dates: start: 19971003
  6. OLANZAPINE [Suspect]
     Dosage: 10 MG, UNK
     Route: 048
     Dates: start: 19971009
  7. OLANZAPINE [Suspect]
     Dosage: 5 MG, UNK
     Dates: start: 199711
  8. OLANZAPINE [Suspect]
     Dosage: 10 MG, QD (EACH MORNING)
     Dates: end: 19971202
  9. OLANZAPINE [Suspect]
     Dosage: EACH MORNING
     Dates: end: 19971202
  10. OLANZAPINE [Suspect]
     Dosage: 15 MG, QD (EACH EVENING)
     Dates: start: 19971202
  11. OLANZAPINE [Suspect]
     Dosage: 7.5 MG, QD
     Dates: start: 19971203
  12. OLANZAPINE [Suspect]
     Dosage: 7.5 MG, BID
     Dates: start: 19980709
  13. OLANZAPINE [Suspect]
     Dosage: 15 MG, QD
     Dates: start: 20010222
  14. OLANZAPINE [Suspect]
     Dosage: 5 MG, BID
     Dates: start: 20030424
  15. OLANZAPINE [Suspect]
     Dosage: 7.5 MG, BID
     Dates: start: 20030505
  16. OLANZAPINE [Suspect]
     Dosage: 7.5 MG, QD
     Dates: start: 20030926, end: 20040210
  17. OLANZAPINE [Suspect]
     Dosage: 15 MG, QD
     Dates: start: 20040505
  18. OLANZAPINE [Suspect]
     Dosage: 7.5 MG, BID
     Dates: end: 200508
  19. OLANZAPINE [Suspect]
     Dosage: 7.5 MG, BID
     Dates: end: 20051019
  20. FLUOXETINE [Concomitant]
     Indication: ANHEDONIA
     Dosage: 20 MG, QD
     Dates: start: 20041020
  21. FLUOXETINE [Concomitant]
     Dosage: 20 MG, QD
     Route: 048
     Dates: start: 19980505, end: 20000906
  22. FLUOXETINE [Concomitant]
     Dosage: UNK
     Dates: start: 20000907
  23. FLUOXETINE [Concomitant]
     Dosage: 20 MG, QD
     Dates: end: 20030403
  24. FLUOXETINE [Concomitant]
     Dosage: 20 MG, UNK
     Dates: start: 20030605
  25. FLUOXETINE [Concomitant]
     Dosage: UNK UKN, UNK
     Dates: end: 20041019
  26. FLUOXETINE [Concomitant]
     Dates: start: 200906
  27. FLUOXETINE [Concomitant]
     Dates: start: 20120405
  28. FLUOXETINE [Concomitant]
     Dosage: 40 MG, UNK
     Dates: start: 20120528
  29. LITHIUM CARBONATE [Concomitant]
     Dosage: 1000 MG, QD (EACH EVENING)
     Dates: start: 19980204
  30. LITHIUM CARBONATE [Concomitant]
     Dosage: 600 MG, BID
     Dates: start: 19971003
  31. LITHIUM CARBONATE [Concomitant]
     Dosage: 200 MG, UNK
     Dates: start: 1998
  32. LITHIUM CARBONATE [Concomitant]
     Dosage: 600 MG, BID
     Dates: end: 19980204
  33. OMEPRAZOLE [Concomitant]
     Indication: HELICOBACTER TEST POSITIVE
     Dosage: 20 MG, UNK
     Dates: end: 19971009
  34. LANSOPRAZOLE [Concomitant]
     Dosage: 15 MG, UNK
     Dates: start: 19971209
  35. LANSOPRAZOLE [Concomitant]
     Dosage: 30 MG, QD
     Dates: start: 19980505
  36. RISPERIDONE [Concomitant]
     Dosage: 1 MG, QD (EACH EVENING)
     Dates: start: 20080819
  37. ALCOHOL [Concomitant]
     Dosage: UNK
     Route: 048
     Dates: start: 19860612
  38. ALCOHOL [Concomitant]
     Dosage: 8 DF, QW
     Route: 048
     Dates: start: 19971011

REACTIONS (7)
  - Diarrhoea haemorrhagic [Unknown]
  - Rectal haemorrhage [Unknown]
  - Diabetes mellitus [Not Recovered/Not Resolved]
  - Weight increased [Unknown]
  - Blood cholesterol increased [Unknown]
  - Blood triglycerides increased [Unknown]
  - Liver function test abnormal [Recovered/Resolved]
